FAERS Safety Report 9439709 (Version 1)
Quarter: 2013Q3

REPORT INFORMATION
  Report Type: Spontaneous
  Country: US (occurrence: US)
  Receive Date: 20130805
  Receipt Date: 20130805
  Transmission Date: 20140515
  Serious: No
  Sender: FDA-Public Use
  Company Number: US-PFIZER INC-2013223181

PATIENT
  Age: 59 Year
  Sex: Female
  Weight: 61.22 kg

DRUGS (4)
  1. PREMARIN [Suspect]
     Indication: HORMONE REPLACEMENT THERAPY
     Dosage: 1.25 MG, 1X/DAY
     Route: 048
  2. PREMARIN [Suspect]
     Dosage: 1.25 MG, 1X/DAY
     Route: 048
  3. IRON [Concomitant]
     Dosage: UNK, 2X/DAY
  4. CALCIUM SUPPLEMENT [Concomitant]
     Dosage: UNK

REACTIONS (7)
  - Hot flush [Unknown]
  - Vomiting [Unknown]
  - Breast pain [Unknown]
  - Insomnia [Unknown]
  - Limb discomfort [Unknown]
  - Chest discomfort [Unknown]
  - Musculoskeletal discomfort [Unknown]
